FAERS Safety Report 23712800 (Version 2)
Quarter: 2024Q2

REPORT INFORMATION
  Report Type: Spontaneous
  Country: US (occurrence: US)
  Receive Date: 20240405
  Receipt Date: 20240419
  Transmission Date: 20240715
  Serious: Yes (Hospitalization)
  Sender: FDA-Public Use
  Company Number: US-TAIHOP-2024-003474

PATIENT
  Age: 31 Year
  Sex: Male

DRUGS (1)
  1. LYTGOBI [Suspect]
     Active Substance: FUTIBATINIB
     Indication: Cholangiocarcinoma
     Route: 048
     Dates: start: 20240213

REACTIONS (3)
  - Blood bilirubin increased [Not Recovered/Not Resolved]
  - Blood creatinine increased [Unknown]
  - Cholangitis [Unknown]

NARRATIVE: CASE EVENT DATE: 20240401
